FAERS Safety Report 5013599-1 (Version None)
Quarter: 2006Q2

REPORT INFORMATION
  Report Type: 
  Country: None (occurrence: None)
  Receive Date: 20060530
  Receipt Date: 20060516
  Transmission Date: 20061013
  Serious: Yes (Death, Life-Threatening, Hospitalization)
  Sender: FDA-Public Use
  Company Number: US016978

PATIENT
  Age: 31 Year
  Sex: Female

DRUGS (5)
  1. CHLORPROMAZINE HCL [Suspect]
     Indication: RASH
     Route: 048
     Dates: start: 20060201, end: 20060201
  2. PROVIGIL [Suspect]
     Indication: MULTIPLE SCLEROSIS
     Dosage: 100MG TWICE PER DAY
     Dates: start: 20060204, end: 20060210
  3. TRILEPTAL [Concomitant]
     Dates: end: 20060204
  4. ZOLOFT [Concomitant]
  5. TOPAMAX [Concomitant]
     Dates: end: 20060101

REACTIONS (15)
  - ASCITES [None]
  - BLOOD PRESSURE DECREASED [None]
  - CARDIAC ENZYMES INCREASED [None]
  - CARDIOMEGALY [None]
  - CHEST PAIN [None]
  - DRUG DISPENSING ERROR [None]
  - EOSINOPHILIC MYOCARDITIS [None]
  - HEPATOMEGALY [None]
  - MYOCARDITIS [None]
  - PAIN [None]
  - PLEURAL EFFUSION [None]
  - PULMONARY OEDEMA [None]
  - PYREXIA [None]
  - RASH ERYTHEMATOUS [None]
  - VENTRICULAR HYPOKINESIA [None]
